FAERS Safety Report 5282569-0 (Version None)
Quarter: 2007Q1

REPORT INFORMATION
  Report Type: 
  Country: None (occurrence: None)
  Receive Date: 20070326
  Receipt Date: 20070315
  Transmission Date: 20070707
  Serious: Yes (Hospitalization)
  Sender: FDA-Public Use
  Company Number: 2007BI005858

PATIENT
  Age: 57 Year
  Sex: Female
  Weight: 95.2554 kg

DRUGS (1)
  1. AVONEX [Suspect]
     Indication: MULTIPLE SCLEROSIS
     Dosage: 7.5 UG;QW;IM
     Route: 030
     Dates: start: 20061101, end: 20070101

REACTIONS (5)
  - BLOOD GLUCOSE INCREASED [None]
  - CONVULSION [None]
  - HYPERTENSION [None]
  - HYPOTENSION [None]
  - VOMITING [None]
